FAERS Safety Report 9280431 (Version 2)
Quarter: 2013Q2

REPORT INFORMATION
  Report Type: Spontaneous
  Country: GB (occurrence: GB)
  Receive Date: 20130509
  Receipt Date: 20130613
  Transmission Date: 20140414
  Serious: Yes (Other)
  Sender: FDA-Public Use
  Company Number: PHHY2013GB043777

PATIENT
  Age: 2 Day
  Sex: Female

DRUGS (10)
  1. DIAZEPAM [Suspect]
     Dosage: MATERNAL DOSE: 5 MG, QD NOCTE
     Route: 064
  2. ZOPICLONE [Suspect]
     Dosage: MATERNAL DOSE: 7.5 MG
     Route: 064
  3. NICOTINE [Suspect]
     Route: 064
  4. SUBUTEX [Suspect]
     Dosage: MATERNAL DOSE: 8 MG DAILY INITIALLY
     Route: 064
  5. SUBUTEX [Suspect]
     Route: 064
  6. SUBUTEX [Suspect]
     Dosage: MATERNAL DOSE: 800 UG
     Route: 064
  7. SUBUTEX [Suspect]
     Dosage: MATERNAL DOSE: 1.2 MG AT DELIVERY
     Route: 064
     Dates: end: 20020706
  8. ALBUTEROL [Suspect]
     Route: 064
  9. BECOTIDE [Suspect]
     Route: 064
  10. METHADONE [Suspect]
     Route: 064

REACTIONS (2)
  - Drug withdrawal syndrome neonatal [Recovered/Resolved]
  - Foetal exposure during pregnancy [Recovered/Resolved]
